FAERS Safety Report 12364508 (Version 1)
Quarter: 2016Q2

REPORT INFORMATION
  Report Type: Report from Study
  Country: BR (occurrence: BR)
  Receive Date: 20160512
  Receipt Date: 20160512
  Transmission Date: 20160815
  Serious: Yes (Other)
  Sender: FDA-Public Use
  Company Number: BR-ABBVIE-16P-020-1626734-00

PATIENT
  Age: 53 Year
  Sex: Female
  Weight: 72.5 kg

DRUGS (5)
  1. SYNTHROID [Suspect]
     Active Substance: LEVOTHYROXINE SODIUM
     Indication: THYROID DISORDER
     Dosage: DAILY DOSE: 25 MICROGRAM; MFG DATE OF SYNTHROID: JUN 2015
     Route: 065
     Dates: start: 20150129
  2. SYNTHROID [Suspect]
     Active Substance: LEVOTHYROXINE SODIUM
     Dosage: DAILY DOSE: 50 MICROGRAM; IN FASTING (30 MINUTES)
     Route: 065
  3. LOTAR [Concomitant]
     Active Substance: AMLODIPINE\LOSARTAN
     Indication: BLOOD PRESSURE ABNORMAL
  4. ROSUVASTATIN. [Concomitant]
     Active Substance: ROSUVASTATIN
     Indication: BLOOD CHOLESTEROL ABNORMAL
  5. RESVERATROL [Concomitant]
     Active Substance: RESVERATROL
     Indication: BLOOD CHOLESTEROL ABNORMAL

REACTIONS (2)
  - Therapeutic response unexpected [Unknown]
  - Hysterectomy [Unknown]

NARRATIVE: CASE EVENT DATE: 20160203
